FAERS Safety Report 8019007-0 (Version None)
Quarter: 2012Q1

REPORT INFORMATION
  Report Type: 
  Country: None (occurrence: None)
  Receive Date: 20120103
  Receipt Date: 20111221
  Transmission Date: 20120608
  Serious: Yes (Death)
  Sender: FDA-Public Use
  Company Number: US-ELI_LILLY_AND_COMPANY-US201112006056

PATIENT
  Sex: Female

DRUGS (4)
  1. INDERAL LA [Concomitant]
     Dosage: UNK, UNKNOWN
     Route: 065
  2. TEGRETOL [Concomitant]
     Dosage: UNK, UNKNOWN
     Route: 065
  3. ZYPREXA [Suspect]
     Indication: MENTAL DISORDER
     Dosage: 10 MG, EACH EVENING
     Route: 065
  4. SIMVASTATIN [Concomitant]
     Dosage: UNK, UNKNOWN
     Route: 065

REACTIONS (1)
  - TOXICITY TO VARIOUS AGENTS [None]
